FAERS Safety Report 25401728 (Version 1)
Quarter: 2025Q2

REPORT INFORMATION
  Report Type: Spontaneous
  Country: US (occurrence: None)
  Receive Date: 20250603
  Receipt Date: 20250603
  Transmission Date: 20250717
  Serious: Yes (Hospitalization)
  Sender: FDA-CTU
  Company Number: None

PATIENT
  Age: 66 Year
  Sex: Male

DRUGS (1)
  1. VISIPAQUE [Suspect]
     Active Substance: IODIXANOL
     Indication: Imaging procedure
     Dates: start: 20250507, end: 20250507

REACTIONS (12)
  - Anaphylactic reaction [None]
  - Rash pruritic [None]
  - Hypotension [None]
  - Contrast media reaction [None]
  - Dyspnoea [None]
  - Dizziness [None]
  - Hypovolaemia [None]
  - Hyponatraemia [None]
  - Acute kidney injury [None]
  - Vomiting [None]
  - Septic shock [None]
  - White blood cell count increased [None]

NARRATIVE: CASE EVENT DATE: 20250507
